FAERS Safety Report 8779241 (Version 2)
Quarter: 2012Q4

REPORT INFORMATION
  Report Type: 
  Country: US (occurrence: US)
  Receive Date: 20120912
  Receipt Date: 20120919
  Transmission Date: 20130627
  Serious: Yes (Other)
  Sender: FDA-Public Use
  Company Number: US-009507513-1208USA007226

PATIENT
  Sex: Female

DRUGS (2)
  1. PEGINTRON [Suspect]
     Indication: HEPATITIS C
     Dosage: Redipen
     Dates: start: 20120711
  2. REBETOL [Suspect]
     Indication: HEPATITIS C
     Dosage: UNK
     Dates: start: 20120711

REACTIONS (13)
  - Transient ischaemic attack [Unknown]
  - Thinking abnormal [Unknown]
  - Cardiac failure congestive [Unknown]
  - Insomnia [Unknown]
  - Fatigue [Unknown]
  - Drug dose omission [Unknown]
  - Asthenia [Unknown]
  - Cardiac failure congestive [Unknown]
  - Dyspnoea [Unknown]
  - Chest discomfort [Unknown]
  - Anaemia [Unknown]
  - Pneumonia [Unknown]
  - Hallucination [Unknown]
